FAERS Safety Report 9120794 (Version 2)
Quarter: 2013Q1

REPORT INFORMATION
  Report Type: Report from Study
  Country: KR (occurrence: KR)
  Receive Date: 20130226
  Receipt Date: 20130321
  Transmission Date: 20140127
  Serious: Yes (Death, Hospitalization)
  Sender: FDA-Public Use
  Company Number: KR-PFIZER INC-2013065459

PATIENT
  Age: 43 Year
  Sex: Female
  Weight: 53 kg

DRUGS (8)
  1. SIROLIMUS [Suspect]
     Indication: IMMUNOSUPPRESSION
     Dosage: 3 MG, 1X/DAY
     Route: 048
     Dates: start: 20121016, end: 20121122
  2. SIROLIMUS [Suspect]
     Indication: PROPHYLAXIS AGAINST GRAFT VERSUS HOST DISEASE
  3. PROGRAF [Suspect]
     Indication: IMMUNOSUPPRESSION
     Dosage: 2 MG, 1X/DAY
     Route: 048
     Dates: start: 20121016, end: 20121122
  4. PROGRAF [Suspect]
     Indication: PROPHYLAXIS AGAINST GRAFT VERSUS HOST DISEASE
  5. ACYCLOVIR [Concomitant]
     Indication: ANTIVIRAL TREATMENT
     Dosage: 800 MG, DAILY
     Route: 048
     Dates: start: 20121105, end: 20121125
  6. MACPERAN [Concomitant]
     Indication: GASTROINTESTINAL DISORDER
     Dosage: 15 MG, DAILY
     Route: 048
     Dates: start: 20121104, end: 20121124
  7. ZANTAC [Concomitant]
     Indication: GASTROINTESTINAL DISORDER
     Dosage: 300 MG, DAILY
     Route: 048
     Dates: start: 20121104, end: 20121121
  8. ITRACONAZOLE [Concomitant]
     Indication: ANTIFUNGAL TREATMENT
     Dosage: 200 MG, DAILY
     Route: 048
     Dates: start: 20121104, end: 20121124

REACTIONS (3)
  - Haemorrhage intracranial [Fatal]
  - Venoocclusive disease [Recovering/Resolving]
  - Thrombocytopenia [Recovering/Resolving]
